FAERS Safety Report 8554946-3 (Version None)
Quarter: 2012Q3

REPORT INFORMATION
  Report Type: 
  Country: None (occurrence: None)
  Receive Date: 20120731
  Receipt Date: 20120112
  Transmission Date: 20120928
  Serious: Yes (Hospitalization, Other)
  Sender: FDA-Public Use
  Company Number: US-ROCHE-1093961

PATIENT
  Sex: Male

DRUGS (3)
  1. XOLAIR [Suspect]
     Indication: RHINITIS ALLERGIC
  2. XOLAIR [Suspect]
     Indication: ASTHMA
     Route: 065
  3. XOLAIR [Suspect]

REACTIONS (3)
  - LUNG DISORDER [None]
  - ASTHMA [None]
  - MALAISE [None]
